FAERS Safety Report 7246294-9 (Version None)
Quarter: 2011Q1

REPORT INFORMATION
  Report Type: 
  Country: None (occurrence: None)
  Receive Date: 20110126
  Receipt Date: 20110119
  Transmission Date: 20110831
  Serious: Yes (Death, Hospitalization, Other)
  Sender: FDA-Public Use
  Company Number: US-BAXTER-2010BH030291

PATIENT
  Age: 70 Year
  Sex: Male

DRUGS (3)
  1. DIANEAL [Suspect]
     Indication: PERITONEAL DIALYSIS
     Route: 033
  2. DIANEAL PD-2 W/ DEXTROSE 1.5% [Suspect]
     Indication: PERITONEAL DIALYSIS
     Route: 033
  3. EXTRANEAL [Suspect]
     Indication: PERITONEAL DIALYSIS
     Route: 033

REACTIONS (14)
  - ASPIRATION [None]
  - SEPSIS [None]
  - FEELING ABNORMAL [None]
  - FALL [None]
  - ACUTE RESPIRATORY FAILURE [None]
  - LOSS OF CONSCIOUSNESS [None]
  - AMNESIA [None]
  - HYPERTENSION [None]
  - MONOPLEGIA [None]
  - PARATHYROID DISORDER [None]
  - BLOOD CALCIUM INCREASED [None]
  - PERITONEAL DIALYSIS COMPLICATION [None]
  - VOMITING [None]
  - CONFUSIONAL STATE [None]
